FAERS Safety Report 21700332 (Version 1)
Quarter: 2022Q4

REPORT INFORMATION
  Report Type: Spontaneous
  Country: US (occurrence: None)
  Receive Date: 20221207
  Receipt Date: 20221207
  Transmission Date: 20230112
  Serious: Yes (Hospitalization)
  Sender: FDA-Public Use
  Company Number: None

PATIENT
  Age: 73 Year
  Sex: Male
  Weight: 138.80 kg

DRUGS (1)
  1. SEMAGLUTIDE [Suspect]
     Active Substance: SEMAGLUTIDE
     Indication: Diabetes mellitus
     Dosage: 0.25 MG QWEEK SQ
     Route: 058
     Dates: start: 20220225, end: 20220915

REACTIONS (5)
  - Rash pruritic [None]
  - Blister [None]
  - Papule [None]
  - Pemphigoid [None]
  - Dermatitis allergic [None]

NARRATIVE: CASE EVENT DATE: 20220915
